FAERS Safety Report 19755368 (Version 2)
Quarter: 2022Q3

REPORT INFORMATION
  Report Type: Spontaneous
  Country: US (occurrence: US)
  Receive Date: 20210827
  Receipt Date: 20220714
  Transmission Date: 20221027
  Serious: No
  Sender: FDA-Public Use
  Company Number: US-RECKITT BENCKISER HEALTHCARE INT LIMITED-RB-90198-2021

PATIENT
  Age: 64 Year
  Sex: Female

DRUGS (2)
  1. MUCINEX DM [Suspect]
     Active Substance: DEXTROMETHORPHAN HYDROBROMIDE\GUAIFENESIN
     Indication: Pulmonary congestion
     Dosage: 600 MILLIGRAM, QD, EVERY NIGHT
     Route: 065
     Dates: start: 2019
  2. MUCINEX [Suspect]
     Active Substance: GUAIFENESIN
     Indication: Dyspnoea
     Dosage: 600 MILLIGRAM, QD, EVERY NIGHT AT 8 - 8:30 PM, SOME TIMES 1 TABLET EVERY 12 HOURS
     Route: 065
     Dates: start: 2019

REACTIONS (2)
  - Product use in unapproved indication [Unknown]
  - Incorrect product administration duration [Unknown]
